FAERS Safety Report 9868071 (Version 2)
Quarter: 2014Q1

REPORT INFORMATION
  Report Type: Spontaneous
  Country: US (occurrence: US)
  Receive Date: 20140204
  Receipt Date: 20140204
  Transmission Date: 20141002
  Serious: Yes (Death, Other)
  Sender: FDA-Public Use
  Company Number: US201201006622

PATIENT
  Age: 73 Year
  Sex: Male

DRUGS (12)
  1. BYETTA PEN DISPOSABLE [Suspect]
     Indication: TYPE 2 DIABETES MELLITUS
     Route: 058
     Dates: start: 20090504, end: 20100811
  2. LANTUS [Concomitant]
  3. HUMULIN R [Concomitant]
  4. GLIPIZIDE XL [Concomitant]
  5. GABAPENTIN [Concomitant]
  6. METOPROLOL [Concomitant]
  7. METFORMIN [Concomitant]
  8. COLCHICINE [Concomitant]
  9. MICARDIS [Concomitant]
  10. ADALAT [Concomitant]
  11. ATORVASTATIN CALCIUM [Concomitant]
  12. METANX [Concomitant]

REACTIONS (1)
  - Pancreatic carcinoma [Fatal]
